FAERS Safety Report 5025810-1 (Version None)
Quarter: 2006Q2

REPORT INFORMATION
  Report Type: 
  Country: None (occurrence: None)
  Receive Date: 20060427
  Receipt Date: 20050411
  Transmission Date: 20061013
  Serious: Yes (Other)
  Sender: FDA-Public Use
  Company Number: 2005057891

PATIENT
  Sex: Female
  Weight: 90.7194 kg

DRUGS (3)
  1. AZITHROMYCIN [Suspect]
     Indication: BRONCHITIS
     Dosage: (250 MG, INTERVAL: EVERY DAY), ORAL
     Route: 048
     Dates: start: 20040501
  2. ESTROGENS (ESTROGENS) [Concomitant]
  3. VITAMINS (VITAMINS) [Concomitant]

REACTIONS (4)
  - ANOSMIA [None]
  - DYSGEUSIA [None]
  - INFECTION [None]
  - PAROSMIA [None]
